FAERS Safety Report 15911667 (Version 1)
Quarter: 2019Q1

REPORT INFORMATION
  Report Type: Spontaneous
  Country: US (occurrence: US)
  Receive Date: 20190204
  Receipt Date: 20190204
  Transmission Date: 20190417
  Serious: No
  Sender: FDA-Public Use
  Company Number: US-ABBVIE-18K-163-2314162-00

PATIENT
  Sex: Male

DRUGS (8)
  1. CLINDAMYCIN. [Concomitant]
     Active Substance: CLINDAMYCIN
     Indication: ACNE FULMINANS
  2. HUMIRA [Suspect]
     Active Substance: ADALIMUMAB
     Route: 058
  3. HUMIRA [Suspect]
     Active Substance: ADALIMUMAB
     Indication: RHEUMATOID ARTHRITIS
     Dosage: TWO INJECTIONS FIRST DAY
     Route: 058
  4. HUMIRA [Suspect]
     Active Substance: ADALIMUMAB
     Route: 058
  5. DAPSONE. [Concomitant]
     Active Substance: DAPSONE
     Indication: ACNE FULMINANS
     Route: 065
  6. ACCUTANE [Concomitant]
     Active Substance: ISOTRETINOIN
  7. ACCUTANE [Concomitant]
     Active Substance: ISOTRETINOIN
     Indication: ACNE FULMINANS
     Dosage: FOR A MONTH
  8. PREDNISONE. [Concomitant]
     Active Substance: PREDNISONE
     Indication: RHEUMATOID ARTHRITIS

REACTIONS (5)
  - Arthralgia [Unknown]
  - Acne fulminans [Unknown]
  - Drug effect incomplete [Unknown]
  - Fear [Unknown]
  - Pyrexia [Unknown]
